FAERS Safety Report 6671388-6 (Version None)
Quarter: 2010Q2

REPORT INFORMATION
  Report Type: 
  Country: None (occurrence: None)
  Receive Date: 20100407
  Receipt Date: 20100324
  Transmission Date: 20101027
  Serious: Yes (Other)
  Sender: FDA-Public Use
  Company Number: B0632212A

PATIENT
  Age: 31 Year
  Sex: Female

DRUGS (7)
  1. RELENZA [Suspect]
     Indication: ANTIVIRAL PROPHYLAXIS
     Dosage: 600MG TWICE PER DAY
     Route: 042
     Dates: start: 20091103, end: 20091108
  2. TAMIFLU [Suspect]
     Indication: ANTIVIRAL PROPHYLAXIS
     Dosage: 150MG PER DAY
     Route: 048
     Dates: start: 20091031, end: 20091102
  3. PANTOPRAZOL [Concomitant]
     Route: 042
     Dates: start: 20091031
  4. ENOXAPARINA [Concomitant]
     Dosage: 40MG PER DAY
     Route: 058
     Dates: start: 20091031
  5. OXYGEN [Concomitant]
  6. ANTIBIOTICS [Concomitant]
  7. PARACETAMOL [Concomitant]

REACTIONS (8)
  - ABORTION INDUCED [None]
  - BLOOD ALKALINE PHOSPHATASE INCREASED [None]
  - CHOLESTASIS [None]
  - DRUG EXPOSURE DURING PREGNANCY [None]
  - GAMMA-GLUTAMYLTRANSFERASE INCREASED [None]
  - LEUKAEMOID REACTION [None]
  - LEUKOCYTOSIS [None]
  - PLATELET COUNT INCREASED [None]
